FAERS Safety Report 16268701 (Version 1)
Quarter: 2019Q2

REPORT INFORMATION
  Report Type: Spontaneous
  Country: US (occurrence: US)
  Receive Date: 20190503
  Receipt Date: 20190503
  Transmission Date: 20190711
  Serious: No
  Sender: FDA-Public Use
  Company Number: US-JNJFOC-20190415805

PATIENT
  Sex: Female
  Weight: 102.06 kg

DRUGS (4)
  1. ORTHO TRI CYCLEN [Suspect]
     Active Substance: ETHINYL ESTRADIOL\NORGESTIMATE
     Indication: HORMONE THERAPY
     Route: 048
  2. PRILOSEC [Concomitant]
     Active Substance: OMEPRAZOLE MAGNESIUM
     Indication: PRODUCT USED FOR UNKNOWN INDICATION
     Dosage: AS NEEDED
     Route: 065
  3. ZYRTEC [Concomitant]
     Active Substance: CETIRIZINE HYDROCHLORIDE
     Indication: PRODUCT USED FOR UNKNOWN INDICATION
     Dosage: AS NEEDED
     Route: 065
  4. TRINESSA [Suspect]
     Active Substance: ETHINYL ESTRADIOL\NORGESTIMATE
     Indication: HORMONE THERAPY
     Route: 048

REACTIONS (1)
  - Menorrhagia [Recovered/Resolved]
